FAERS Safety Report 24949073 (Version 1)
Quarter: 2025Q1

REPORT INFORMATION
  Report Type: Spontaneous
  Country: US (occurrence: US)
  Receive Date: 20250210
  Receipt Date: 20250210
  Transmission Date: 20250409
  Serious: No
  Sender: ALKEM
  Company Number: US-ALKEM LABORATORIES LIMITED-US-ALKEM-2024-16716

PATIENT
  Sex: Male
  Weight: 71.655 kg

DRUGS (3)
  1. FINASTERIDE [Suspect]
     Active Substance: FINASTERIDE
     Indication: Androgenetic alopecia
     Route: 048
  2. FINASTERIDE [Suspect]
     Active Substance: FINASTERIDE
     Indication: Androgenetic alopecia
  3. MINOXIDIL [Concomitant]
     Active Substance: MINOXIDIL
     Indication: Product used for unknown indication
     Route: 065

REACTIONS (6)
  - Adverse drug reaction [Unknown]
  - Chest pain [Recovering/Resolving]
  - Chest discomfort [Recovering/Resolving]
  - Blood testosterone abnormal [Recovered/Resolved]
  - Blood oestrogen abnormal [Recovering/Resolving]
  - Breast enlargement [Recovering/Resolving]
